FAERS Safety Report 8505797-7 (Version None)
Quarter: 2012Q2

REPORT INFORMATION
  Report Type: 
  Country: None (occurrence: None)
  Receive Date: 20120629
  Receipt Date: 20120612
  Transmission Date: 20120825
  Serious: Yes (Hospitalization)
  Sender: FDA-Public Use
  Company Number: ENTC2012-0271

PATIENT
  Age: 68 Year
  Sex: Male

DRUGS (1)
  1. STALEVO 50 [Suspect]
     Indication: PARKINSON'S DISEASE

REACTIONS (11)
  - OVERDOSE [None]
  - HAEMOGLOBIN DECREASED [None]
  - DELIRIUM [None]
  - C-REACTIVE PROTEIN INCREASED [None]
  - BLOOD CALCIUM DECREASED [None]
  - BLOOD CREATININE DECREASED [None]
  - HALLUCINATION [None]
  - HAEMATOCRIT DECREASED [None]
  - EOSINOPHIL COUNT DECREASED [None]
  - DELUSION [None]
  - BLOOD GLUCOSE INCREASED [None]
